FAERS Safety Report 8688376 (Version 2)
Quarter: 2013Q4

REPORT INFORMATION
  Report Type: Spontaneous
  Country: US (occurrence: US)
  Receive Date: 20120727
  Receipt Date: 20131101
  Transmission Date: 20140711
  Serious: No
  Sender: FDA-Public Use
  Company Number: US-009507513-1206USA04587

PATIENT
  Age: 46 Year
  Sex: Female

DRUGS (3)
  1. AZASITE [Suspect]
     Dosage: 1, DROP, BID
     Route: 047
     Dates: start: 20120614, end: 20120616
  2. AZASITE [Suspect]
     Dosage: 1 DROP QD
     Route: 047
  3. CECLOR [Concomitant]

REACTIONS (2)
  - Eye pain [Not Recovered/Not Resolved]
  - Off label use [Unknown]
